FAERS Safety Report 8453076-9 (Version None)
Quarter: 2012Q2

REPORT INFORMATION
  Report Type: 
  Country: None (occurrence: None)
  Receive Date: 20120620
  Receipt Date: 20120517
  Transmission Date: 20120825
  Serious: No
  Sender: FDA-Public Use
  Company Number: US-VERTEX PHARMACEUTICALS INC.-AE-2012-006568

PATIENT
  Sex: Male
  Weight: 97.61 kg

DRUGS (5)
  1. INCIVEK [Suspect]
     Indication: HEPATITIS C
     Route: 048
     Dates: start: 20120504, end: 20120507
  2. ATENOLOL [Concomitant]
     Indication: HYPERTENSION
     Route: 048
  3. PEGASYS [Concomitant]
     Indication: HEPATITIS C
     Route: 058
     Dates: start: 20120504
  4. LISINIPRIL [Concomitant]
     Indication: HYPERTENSION
     Route: 048
  5. RIBAVIRIN [Concomitant]
     Indication: HEPATITIS C
     Route: 048
     Dates: start: 20120504

REACTIONS (8)
  - COLD SWEAT [None]
  - PRURITUS [None]
  - ABDOMINAL DISTENSION [None]
  - VOMITING [None]
  - WEIGHT DECREASED [None]
  - DECREASED APPETITE [None]
  - RASH ERYTHEMATOUS [None]
  - HOT FLUSH [None]
